FAERS Safety Report 25840362 (Version 1)
Quarter: 2025Q3

REPORT INFORMATION
  Report Type: Report from Study
  Country: US (occurrence: US)
  Receive Date: 20250924
  Receipt Date: 20250924
  Transmission Date: 20251020
  Serious: Yes (Other)
  Sender: ABBVIE
  Company Number: US-ABBVIE-6468492

PATIENT
  Sex: Female

DRUGS (1)
  1. HUMIRA [Suspect]
     Active Substance: ADALIMUMAB
     Indication: Product used for unknown indication
     Route: 058
     Dates: start: 20231025

REACTIONS (7)
  - Suicidal ideation [Unknown]
  - Depression [Not Recovered/Not Resolved]
  - Dysstasia [Unknown]
  - Depressed mood [Unknown]
  - Condition aggravated [Not Recovered/Not Resolved]
  - Pain in extremity [Unknown]
  - Skin ulcer [Unknown]
